FAERS Safety Report 5304128-3 (Version None)
Quarter: 2007Q2

REPORT INFORMATION
  Report Type: 
  Country: None (occurrence: None)
  Receive Date: 20070423
  Receipt Date: 20070410
  Transmission Date: 20071010
  Serious: Yes (Hospitalization)
  Sender: FDA-Public Use
  Company Number: PHRM2007FR01269

PATIENT
  Age: 79 Year
  Sex: Male

DRUGS (4)
  1. LESCOL [Suspect]
     Dosage: 20 MG, QD
     Route: 048
     Dates: end: 20060723
  2. LASIX [Suspect]
     Dosage: 40 MG, QD
     Route: 048
     Dates: end: 20060723
  3. GLUCOPHAGE [Suspect]
     Dosage: 3 G PER DAY
     Route: 048
     Dates: end: 20060723
  4. ACARBOSE [Suspect]
     Dosage: 300 MG PER DAY
     Route: 048
     Dates: end: 20060723

REACTIONS (8)
  - ANOREXIA [None]
  - BLOOD CREATININE INCREASED [None]
  - BRADYCARDIA [None]
  - FALL [None]
  - GENERAL PHYSICAL HEALTH DETERIORATION [None]
  - HYPERKALAEMIA [None]
  - HYPONATRAEMIA [None]
  - RENAL FAILURE ACUTE [None]
